FAERS Safety Report 16378343 (Version 1)
Quarter: 2019Q2

REPORT INFORMATION
  Report Type: Spontaneous
  Country: US (occurrence: US)
  Receive Date: 20190411
  Receipt Date: 20190411
  Transmission Date: 20190711
  Serious: Yes (Other)
  Sender: FDA-Public Use
  Company Number: None

PATIENT
  Sex: Female
  Weight: 74.3 kg

DRUGS (14)
  1. ACETAMINOPHEN. [Concomitant]
     Active Substance: ACETAMINOPHEN
  2. FENTANYL. [Concomitant]
     Active Substance: FENTANYL
  3. FLOVENT [Concomitant]
     Active Substance: FLUTICASONE PROPIONATE
  4. ATENOLOL. [Concomitant]
     Active Substance: ATENOLOL
  5. MULTIPLE VITAMIN [Concomitant]
     Active Substance: VITAMINS
  6. CAPECITABINE. [Suspect]
     Active Substance: CAPECITABINE
     Indication: BREAST CANCER
     Dosage: ?          OTHER FREQUENCY:BID 2WK ON 1WK OFF;?
     Route: 048
     Dates: start: 20190114
  7. CLOTRIMAZOLE. [Concomitant]
     Active Substance: CLOTRIMAZOLE
  8. ONDANSETRON [Concomitant]
     Active Substance: ONDANSETRON
  9. AMLODIPINE [Concomitant]
     Active Substance: AMLODIPINE BESYLATE
  10. OXYCODONE [Concomitant]
     Active Substance: OXYCODONE
  11. CAPECITABINE. [Suspect]
     Active Substance: CAPECITABINE
     Indication: BREAST CANCER
     Dosage: ?          OTHER FREQUENCY:BID 2WK ON 1WK OFF;?
     Route: 048
     Dates: start: 20190319, end: 20190411
  12. VENTOLIN [Concomitant]
     Active Substance: ALBUTEROL SULFATE
  13. LORAZEPAM. [Concomitant]
     Active Substance: LORAZEPAM
  14. SULINDAC. [Concomitant]
     Active Substance: SULINDAC

REACTIONS (2)
  - Palmar-plantar erythrodysaesthesia syndrome [None]
  - Therapy change [None]
